FAERS Safety Report 8180237-9 (Version None)
Quarter: 2012Q1

REPORT INFORMATION
  Report Type: 
  Country: None (occurrence: None)
  Receive Date: 20120302
  Receipt Date: 20120217
  Transmission Date: 20120608
  Serious: Yes (Congenital Anomaly)
  Sender: FDA-Public Use
  Company Number: US-MYLANLABS-2012S1003926

PATIENT

DRUGS (4)
  1. CARBAMAZEPINE [Suspect]
     Dosage: 800MG
     Route: 064
  2. CLONAZEPAM [Suspect]
     Dosage: 2MG
     Route: 064
  3. GABAPENTIN [Suspect]
     Dosage: 900MG
     Route: 064
  4. TOPIRAMATE [Suspect]
     Dosage: 400MG
     Route: 064

REACTIONS (3)
  - MATERNAL EXPOSURE DURING PREGNANCY [None]
  - CLEFT PALATE [None]
  - CLEFT LIP [None]
